FAERS Safety Report 18730581 (Version 2)
Quarter: 2021Q1

REPORT INFORMATION
  Report Type: Spontaneous
  Country: CR (occurrence: CR)
  Receive Date: 20210112
  Receipt Date: 20210126
  Transmission Date: 20210419
  Serious: Yes (Other)
  Sender: FDA-Public Use
  Company Number: CR-PFIZER INC-2021017244

PATIENT
  Age: 89 Year
  Sex: Male

DRUGS (4)
  1. LIPITOR [Suspect]
     Active Substance: ATORVASTATIN CALCIUM
     Dosage: 1 DF, DAILY
     Route: 048
     Dates: start: 2020, end: 202002
  2. NORVASC [Suspect]
     Active Substance: AMLODIPINE BESYLATE
     Dosage: 1 DF, DAILY
     Route: 048
     Dates: start: 2020, end: 202002
  3. CADUET [Suspect]
     Active Substance: AMLODIPINE BESYLATE\ATORVASTATIN CALCIUM
     Dosage: 1 DF, DAILY
     Route: 048
     Dates: start: 2011, end: 2020
  4. CADUET [Suspect]
     Active Substance: AMLODIPINE BESYLATE\ATORVASTATIN CALCIUM
     Dosage: UNK
     Dates: start: 202002

REACTIONS (1)
  - Deafness [Unknown]
